FAERS Safety Report 6871714-9 (Version None)
Quarter: 2010Q3

REPORT INFORMATION
  Report Type: 
  Country: None (occurrence: None)
  Receive Date: 20100723
  Receipt Date: 20100702
  Transmission Date: 20110219
  Serious: Yes (Hospitalization)
  Sender: FDA-Public Use
  Company Number: A0834222A

PATIENT
  Age: 57 Year
  Sex: Male
  Weight: 109.1 kg

DRUGS (8)
  1. AVANDIA [Suspect]
     Indication: DIABETES MELLITUS
     Dosage: 8MG PER DAY
     Route: 048
     Dates: start: 20040306, end: 20080101
  2. ATENOLOL [Concomitant]
  3. LORAZEPAM [Concomitant]
  4. CYCLOBENZAPRINE [Concomitant]
  5. LIPITOR [Concomitant]
  6. ZANAFLEX [Concomitant]
  7. LEVOXYL [Concomitant]
  8. CPAP [Concomitant]

REACTIONS (3)
  - CARDIAC FAILURE CONGESTIVE [None]
  - CHRONIC OBSTRUCTIVE PULMONARY DISEASE [None]
  - MYOCARDIAL INFARCTION [None]
